FAERS Safety Report 10668801 (Version 2)
Quarter: 2015Q1

REPORT INFORMATION
  Report Type: Report from Study
  Country: JP (occurrence: JP)
  Receive Date: 20141222
  Receipt Date: 20150309
  Transmission Date: 20150720
  Serious: Yes (Other)
  Sender: FDA-Public Use
  Company Number: JP-EISAI MEDICAL RESEARCH-EC-2014-002643

PATIENT
  Age: 81 Year
  Sex: Male

DRUGS (13)
  1. FOLIAMIN [Concomitant]
     Active Substance: FOLIC ACID
  2. ALINAMIN F [Concomitant]
     Active Substance: FURSULTIAMINE HYDROCHLORIDE
  3. METHYCOBAL [Concomitant]
     Active Substance: METHYLCOBALAMIN
  4. GRANDAXIN [Concomitant]
     Active Substance: TOFISOPAM
  5. HERBESSER [Concomitant]
     Active Substance: DILTIAZEM HYDROCHLORIDE
  6. ARICEPT [Suspect]
     Active Substance: DONEPEZIL HYDROCHLORIDE
     Indication: DEMENTIA ALZHEIMER^S TYPE
     Route: 048
     Dates: start: 20130820, end: 20130828
  7. AMLODIN [Concomitant]
     Active Substance: AMLODIPINE BESYLATE
  8. MAGMITT [Concomitant]
     Active Substance: MAGNESIUM OXIDE
  9. NITROL [Concomitant]
     Active Substance: NITROGLYCERIN
  10. FERROMIA [Concomitant]
     Active Substance: FERROUS CITRATE
  11. ARICEPT [Suspect]
     Active Substance: DONEPEZIL HYDROCHLORIDE
     Route: 048
     Dates: start: 20130829, end: 20140512
  12. PURSENNID [Concomitant]
     Active Substance: SENNOSIDES A AND B
  13. FLAVITAN [Concomitant]
     Active Substance: FLAVIN ADENINE DINUCLEOTIDE

REACTIONS (1)
  - Hepatic cirrhosis [Recovered/Resolved]

NARRATIVE: CASE EVENT DATE: 20131211
